FAERS Safety Report 6153864-8 (Version None)
Quarter: 2009Q2

REPORT INFORMATION
  Report Type: 
  Country: None (occurrence: None)
  Receive Date: 20090414
  Receipt Date: 20090402
  Transmission Date: 20091009
  Serious: Yes (Life-Threatening)
  Sender: FDA-Public Use
  Company Number: DE-JNJFOC-20090400193

PATIENT
  Age: 33 Year
  Sex: Female
  Weight: 97 kg

DRUGS (6)
  1. REMICADE [Suspect]
     Dosage: 3RD INFUSION
  2. REMICADE [Suspect]
  3. REMICADE [Suspect]
     Indication: PSORIATIC ARTHROPATHY
  4. METEX [Concomitant]
     Indication: PSORIATIC ARTHROPATHY
     Route: 058
  5. PREDNISOLONE [Concomitant]
     Indication: PSORIATIC ARTHROPATHY
     Route: 048
  6. IBUPROFEN [Concomitant]

REACTIONS (6)
  - CARDIOVASCULAR INSUFFICIENCY [None]
  - FACE OEDEMA [None]
  - HYPERSENSITIVITY [None]
  - INFUSION RELATED REACTION [None]
  - PALPITATIONS [None]
  - TACHYCARDIA [None]
